FAERS Safety Report 9506448 (Version 1)
Quarter: 2013Q1

REPORT INFORMATION
  Report Type: Spontaneous
  Country: US (occurrence: None)
  Receive Date: 20130305
  Receipt Date: 20130305
  Transmission Date: 20140127
  Serious: Yes (Other)
  Sender: FDA-Public Use
  Company Number: 163-21880-12030368

PATIENT
  Age: 73 Year
  Sex: Male
  Weight: 73.03 kg

DRUGS (11)
  1. REVLIMID [Suspect]
     Indication: PLASMA CELL MYELOMA
     Dosage: 1 IN 1 D
     Route: 048
     Dates: start: 20120112, end: 20120130
  2. ASPIRIN [Concomitant]
  3. ATORVASTATIN [Concomitant]
  4. CYCLOBENZAPRINE [Concomitant]
  5. DOXYCYCLINE [Concomitant]
  6. HYDROCODONE [Concomitant]
  7. METOPROLOL [Concomitant]
  8. MULTIVITAMINS [Concomitant]
  9. POTASSIUM CHLORIDE [Concomitant]
  10. PHENERGAN [Concomitant]
  11. TEMAZEPAM [Concomitant]

REACTIONS (3)
  - Fatigue [None]
  - Asthenia [None]
  - Decreased appetite [None]
